FAERS Safety Report 8611020-5 (Version None)
Quarter: 2012Q3

REPORT INFORMATION
  Report Type: 
  Country: None (occurrence: None)
  Receive Date: 20120822
  Receipt Date: 20120816
  Transmission Date: 20120928
  Serious: Yes (Other)
  Sender: FDA-Public Use
  Company Number: US-PFIZER INC-2012201727

PATIENT
  Age: 39 Year
  Sex: Female
  Weight: 81.633 kg

DRUGS (4)
  1. FENTANYL [Concomitant]
     Indication: DIABETIC NEUROPATHY
     Dosage: UNK
  2. LYRICA [Suspect]
     Indication: DIABETIC NEUROPATHY
     Dosage: 100 MG, 2X/DAY
     Route: 048
     Dates: start: 20030101, end: 20050101
  3. LISINOPRIL [Concomitant]
     Dosage: UNK
  4. INSULIN [Concomitant]
     Indication: TYPE 1 DIABETES MELLITUS
     Dosage: UNK

REACTIONS (2)
  - PARAESTHESIA [None]
  - GLYCOSYLATED HAEMOGLOBIN INCREASED [None]
